FAERS Safety Report 9324893 (Version 1)
Quarter: 2013Q2

REPORT INFORMATION
  Report Type: Spontaneous
  Country: IT (occurrence: IT)
  Receive Date: 20130603
  Receipt Date: 20130603
  Transmission Date: 20140414
  Serious: Yes (Hospitalization)
  Sender: FDA-Public Use
  Company Number: PHHY2013IT054505

PATIENT
  Sex: Female

DRUGS (4)
  1. DIAZEPAM [Suspect]
     Dosage: 10 ML
     Route: 048
     Dates: start: 20130427, end: 20130427
  2. SPASMOMEN SOMATICO [Suspect]
     Dosage: 200 MG, QD
     Route: 048
     Dates: start: 20130427, end: 20130427
  3. CHARCOAL, ACTIVATED [Suspect]
     Dosage: 30 G
  4. FEXOFENADINE [Concomitant]

REACTIONS (1)
  - Suicide attempt [Recovered/Resolved]
